FAERS Safety Report 21098527 (Version 1)
Quarter: 2022Q3

REPORT INFORMATION
  Report Type: Spontaneous
  Country: US (occurrence: US)
  Receive Date: 20220719
  Receipt Date: 20220719
  Transmission Date: 20221027
  Serious: No
  Sender: FDA-Public Use
  Company Number: US-UROGEN PHARMA LTD.-2022-UGN-000061

PATIENT

DRUGS (5)
  1. JELMYTO [Suspect]
     Active Substance: MITOMYCIN
     Indication: Transitional cell cancer of the renal pelvis and ureter
     Dosage: UNK ONE TIME PER WEEK (INSTILLATION)
     Dates: start: 20220506, end: 20220506
  2. JELMYTO [Suspect]
     Active Substance: MITOMYCIN
     Dosage: UNK ONE TIME PER WEEK (INSTILLATION)
     Dates: start: 202205, end: 202205
  3. JELMYTO [Suspect]
     Active Substance: MITOMYCIN
     Dosage: UNK ONE TIME PER WEEK (INSTILLATION)
     Dates: start: 202205, end: 202205
  4. JELMYTO [Suspect]
     Active Substance: MITOMYCIN
     Dosage: UNK ONE TIME PER WEEK (INSTILLATION)
     Dates: start: 20220526, end: 20220526
  5. JELMYTO [Suspect]
     Active Substance: MITOMYCIN
     Dosage: UNK ONE TIME PER WEEK (INSTILLATION)
     Dates: start: 20220602, end: 20220602

REACTIONS (1)
  - Rash [Unknown]

NARRATIVE: CASE EVENT DATE: 20220526
